FAERS Safety Report 10137564 (Version 1)
Quarter: 2014Q2

REPORT INFORMATION
  Report Type: Spontaneous
  Country: US (occurrence: None)
  Receive Date: 20140428
  Receipt Date: 20140428
  Transmission Date: 20141212
  Serious: No
  Sender: FDA-Public Use
  Company Number: None

PATIENT
  Age: 55 Year
  Sex: Male
  Weight: 111.4 kg

DRUGS (2)
  1. GEMCITABINE HYDROCHLORIDE [Suspect]
  2. SUNITINIB MALATE [Suspect]
     Indication: PRODUCT USED FOR UNKNOWN INDICATION

REACTIONS (6)
  - Device occlusion [None]
  - Haematuria [None]
  - Hyperhidrosis [None]
  - Tachypnoea [None]
  - Hypotension [None]
  - Liver function test abnormal [None]
